FAERS Safety Report 8009560-5 (Version None)
Quarter: 2011Q4

REPORT INFORMATION
  Report Type: 
  Country: None (occurrence: None)
  Receive Date: 20111227
  Receipt Date: 20111210
  Transmission Date: 20120403
  Serious: Yes (Hospitalization)
  Sender: FDA-Public Use
  Company Number: PHHY2011FR108460

PATIENT
  Age: 53 Year
  Sex: Female

DRUGS (3)
  1. METHOTREXATE W/CYTARABINE/HYDROCORTISONE [Concomitant]
     Dosage: UNK UKN, UNK
  2. IMATINIB MESYLATE [Suspect]
     Indication: ACUTE LYMPHOCYTIC LEUKAEMIA
     Dosage: 800 MG, PER DAY FROM DAY 1 TO 15
     Route: 048
  3. HYPER-CVAD [Suspect]
     Dosage: CYCLOPHOSPHAMIDE(300 MG/M2), DOXORUBICIN(50 MG/M2), VINCRISTINE(2 MG/DAY),DEXAMETHASONE (40 MG/DAY)

REACTIONS (17)
  - FEBRILE NEUTROPENIA [None]
  - SKIN NECROSIS [None]
  - RESPIRATORY DISTRESS [None]
  - PARONYCHIA [None]
  - MYALGIA [None]
  - FUNGAL INFECTION [None]
  - ERYTHEMA [None]
  - BRONCHOPULMONARY ASPERGILLOSIS [None]
  - LUNG NEOPLASM [None]
  - DIARRHOEA [None]
  - SKIN LESION [None]
  - SYSTEMIC CANDIDA [None]
  - FUSARIUM INFECTION [None]
  - SUBCUTANEOUS NODULE [None]
  - NEUTROPENIA [None]
  - CHILLS [None]
  - RASH [None]
